FAERS Safety Report 12406361 (Version 1)
Quarter: 2016Q2

REPORT INFORMATION
  Report Type: Spontaneous
  Country: GB (occurrence: GB)
  Receive Date: 20160526
  Receipt Date: 20160526
  Transmission Date: 20160815
  Serious: Yes (Disabling, Other)
  Sender: FDA-Public Use
  Company Number: GB-WATSON-2016-10685

PATIENT
  Age: 38 Year
  Sex: Male

DRUGS (4)
  1. VENLAFAXINE [Concomitant]
     Active Substance: VENLAFAXINE HYDROCHLORIDE
     Indication: PRODUCT USED FOR UNKNOWN INDICATION
     Dosage: UNK
     Route: 065
  2. ATENOLOL (UNKNOWN) [Suspect]
     Active Substance: ATENOLOL
     Indication: ANXIETY
     Dosage: 50 MG, DAILY
     Route: 048
     Dates: start: 20160321, end: 20160329
  3. PROPRANOLOL [Suspect]
     Active Substance: PROPRANOLOL\PROPRANOLOL HYDROCHLORIDE
     Indication: ANXIETY
     Dosage: UNK (TAPER DOWN. 2 DAYS OF 10MG AND 1 DAY OF 5MG)
     Route: 048
     Dates: start: 20160416, end: 20160420
  4. PROPRANOLOL [Suspect]
     Active Substance: PROPRANOLOL\PROPRANOLOL HYDROCHLORIDE
     Dosage: 10 MG, TID
     Route: 048
     Dates: start: 20160316, end: 20160321

REACTIONS (8)
  - Fatigue [Unknown]
  - Tremor [Unknown]
  - Hypertension [Unknown]
  - Lethargy [Unknown]
  - Agitation [Unknown]
  - Palpitations [Recovered/Resolved with Sequelae]
  - Panic attack [Unknown]
  - Feeling hot [Unknown]

NARRATIVE: CASE EVENT DATE: 20160317
